FAERS Safety Report 17309828 (Version 1)
Quarter: 2020Q1

REPORT INFORMATION
  Report Type: Spontaneous
  Country: US (occurrence: US)
  Receive Date: 20200123
  Receipt Date: 20200123
  Transmission Date: 20200409
  Serious: Yes (Disabling, Other)
  Sender: FDA-Public Use
  Company Number: US-BAUSCH-BL-2020-001620

PATIENT
  Age: 62 Year
  Sex: Male

DRUGS (2)
  1. NEOMYCIN. [Suspect]
     Active Substance: NEOMYCIN
     Indication: HEPATIC ENCEPHALOPATHY
     Route: 065
  2. XIFAXAN [Suspect]
     Active Substance: RIFAXIMIN
     Indication: PRODUCT USED FOR UNKNOWN INDICATION
     Route: 065

REACTIONS (4)
  - Hepatic encephalopathy [Unknown]
  - Nephropathy [Unknown]
  - Liver disorder [Unknown]
  - Deafness [Unknown]
